FAERS Safety Report 22155258 (Version 1)
Quarter: 2023Q1

REPORT INFORMATION
  Report Type: Spontaneous
  Country: US (occurrence: US)
  Receive Date: 20230330
  Receipt Date: 20230330
  Transmission Date: 20230418
  Serious: No
  Sender: FDA-Public Use
  Company Number: US-UNITED THERAPEUTICS-UNT-2023-008781

PATIENT
  Age: 40 Year
  Sex: Female
  Weight: 68.027 kg

DRUGS (3)
  1. REMODULIN [Suspect]
     Active Substance: TREPROSTINIL
     Indication: Pulmonary arterial hypertension
     Dosage: 0.015 ?G/KG (SELF-FILL WITH 2.3 ML PER CASSETTE; PUMP RATE OF 25 MCL/HR), CONTINUING
     Route: 058
  2. REMODULIN [Suspect]
     Active Substance: TREPROSTINIL
     Dosage: UNK, CONTINUING
     Route: 058
     Dates: start: 20221109
  3. OPSUMIT [Concomitant]
     Active Substance: MACITENTAN
     Indication: Product used for unknown indication
     Route: 065

REACTIONS (5)
  - Infusion site pain [Unknown]
  - Infusion site erythema [Unknown]
  - Sensitive skin [Unknown]
  - Device failure [Recovered/Resolved]
  - Device wireless communication issue [Unknown]

NARRATIVE: CASE EVENT DATE: 20230325
